FAERS Safety Report 4654514-X (Version None)
Quarter: 2005Q2

REPORT INFORMATION
  Report Type: 
  Country: None (occurrence: None)
  Receive Date: 20050504
  Receipt Date: 20050504
  Transmission Date: 20051028
  Serious: Yes (Other)
  Sender: FDA-Public Use
  Company Number: None

PATIENT
  Sex: Female
  Weight: 56.6996 kg

DRUGS (1)
  1. RID [Suspect]
     Indication: LICE INFESTATION
     Dosage: 2-3 TIMES A WEEK
     Dates: start: 20030201, end: 20030501

REACTIONS (1)
  - UPPER RESPIRATORY TRACT INFECTION [None]
